FAERS Safety Report 6085785-3 (Version None)
Quarter: 2009Q1

REPORT INFORMATION
  Report Type: 
  Country: None (occurrence: None)
  Receive Date: 20090220
  Receipt Date: 20090209
  Transmission Date: 20090719
  Serious: Yes (Life-Threatening, Other)
  Sender: FDA-Public Use
  Company Number: CA-BRISTOL-MYERS SQUIBB COMPANY-14499750

PATIENT
  Age: 59 Year
  Sex: Female

DRUGS (9)
  1. DAPAGLIFLOZIN [Suspect]
     Indication: TYPE 2 DIABETES MELLITUS
     Route: 048
     Dates: start: 20081030
  2. NOVOLIN 40/60 [Suspect]
     Indication: TYPE 2 DIABETES MELLITUS
     Dosage: REGIMIN:BIPHASIC
     Dates: start: 20061010
  3. BLINDED: PLACEBO [Suspect]
     Indication: TYPE 2 DIABETES MELLITUS
     Route: 048
     Dates: start: 20081030
  4. METFORMIN HCL [Suspect]
     Indication: TYPE 2 DIABETES MELLITUS
     Route: 048
  5. LIPITOR [Concomitant]
     Indication: HYPERCHOLESTEROLAEMIA
     Route: 048
  6. COVERSYL [Concomitant]
     Indication: HYPERTENSION
     Route: 048
  7. LOXAPINE [Concomitant]
     Indication: DEPRESSION
     Route: 048
  8. LORAZEPAM [Concomitant]
     Indication: PANIC ATTACK
     Dosage: SUBLINGUAL
     Route: 048
     Dates: start: 20020701
  9. CIPRO [Concomitant]
     Indication: URINARY TRACT INFECTION
     Route: 048
     Dates: start: 20081127

REACTIONS (1)
  - HYPOGLYCAEMIA [None]
